FAERS Safety Report 8213393-4 (Version None)
Quarter: 2012Q1

REPORT INFORMATION
  Report Type: 
  Country: None (occurrence: None)
  Receive Date: 20120315
  Receipt Date: 20120312
  Transmission Date: 20120608
  Serious: Yes (Life-Threatening, Other)
  Sender: FDA-Public Use
  Company Number: IL-ROCHE-1037397

PATIENT
  Age: 63 Year
  Sex: Male

DRUGS (11)
  1. LACTULOSE [Concomitant]
     Dosage: LACTULOSE SOLUTION
  2. CRESTOR [Concomitant]
  3. IODINE NOS [Suspect]
     Indication: PRODUCT USED FOR UNKNOWN INDICATION
  4. SIMVASTATIN [Concomitant]
  5. VEMURAFENIB [Suspect]
     Indication: MALIGNANT MELANOMA
     Dosage: LAST DOSE PRIOR TO SAE: 18/JAN/2012
     Route: 048
     Dates: start: 20110721
  6. LEVOTHYROXINE SODIUM [Concomitant]
  7. METFORMIN HCL [Concomitant]
  8. LEVOTHYROXINE SODIUM [Concomitant]
     Dosage: ALSO GIVEN AS ELTROXIN 50 MCG DAILY
  9. TAMSULOSIN HCL [Concomitant]
  10. LANSOPRAZOLE [Concomitant]
  11. OXYCODONE HCL [Concomitant]

REACTIONS (3)
  - HYPOKINESIA [None]
  - LEFT VENTRICULAR DYSFUNCTION [None]
  - RENAL FAILURE ACUTE [None]
